FAERS Safety Report 5770350-5 (Version None)
Quarter: 2008Q2

REPORT INFORMATION
  Report Type: 
  Country: None (occurrence: None)
  Receive Date: 20080613
  Receipt Date: 20080424
  Transmission Date: 20081010
  Serious: No
  Sender: FDA-Public Use
  Company Number: US-ABBOTT-08P-163-0449233-00

PATIENT
  Sex: Female
  Weight: 52.21 kg

DRUGS (2)
  1. HUMIRA [Suspect]
     Indication: CROHN'S DISEASE
     Route: 058
     Dates: start: 20071115, end: 20080326
  2. HUMIRA [Suspect]
     Route: 058
     Dates: start: 20080327, end: 20080401

REACTIONS (2)
  - CROHN'S DISEASE [None]
  - UPPER RESPIRATORY TRACT INFECTION [None]
